FAERS Safety Report 17166892 (Version 2)
Quarter: 2019Q4

REPORT INFORMATION
  Report Type: Spontaneous
  Country: ZA (occurrence: ZA)
  Receive Date: 20191217
  Receipt Date: 20191223
  Transmission Date: 20200122
  Serious: Yes (Hospitalization, Disabling, Other)
  Sender: FDA-Public Use
  Company Number: ZA-BIOMARINAP-ZA-2019-127357

PATIENT
  Sex: Male
  Weight: 13.8 kg

DRUGS (1)
  1. ALDURAZYME [Suspect]
     Active Substance: LARONIDASE
     Indication: MUCOPOLYSACCHARIDOSIS I
     Dosage: 2.76 DOSAGE FORM
     Route: 041

REACTIONS (7)
  - Deafness [Unknown]
  - Complication associated with device [Unknown]
  - Corneal opacity [Unknown]
  - Hydrocephalus [Unknown]
  - Visual impairment [Unknown]
  - Tonsillar disorder [Unknown]
  - Hernia [Unknown]
